FAERS Safety Report 25534214 (Version 1)
Quarter: 2025Q3

REPORT INFORMATION
  Report Type: Spontaneous
  Country: EU (occurrence: EU)
  Receive Date: 20250709
  Receipt Date: 20250709
  Transmission Date: 20251021
  Serious: Yes (Death, Other)
  Sender: MERCK SHARP & DOHME LLC
  Company Number: EU-009507513-2305005

PATIENT
  Sex: Female

DRUGS (2)
  1. PEMBROLIZUMAB [Suspect]
     Active Substance: PEMBROLIZUMAB
     Indication: Cervix cancer metastatic
  2. AVASTIN [Suspect]
     Active Substance: BEVACIZUMAB
     Indication: Cervix cancer metastatic

REACTIONS (2)
  - Thrombosis [Unknown]
  - Malignant neoplasm progression [Fatal]
